FAERS Safety Report 7924589-0 (Version None)
Quarter: 2011Q4

REPORT INFORMATION
  Report Type: 
  Country: None (occurrence: None)
  Receive Date: 20111117
  Receipt Date: 20110324
  Transmission Date: 20120403
  Serious: No
  Sender: FDA-Public Use
  Company Number: US-AMGEN-KDL445020

PATIENT
  Age: 69 Year
  Sex: Female

DRUGS (2)
  1. ENBREL [Suspect]
     Indication: PSORIASIS
     Dosage: 50 MG, QWK
     Route: 058
     Dates: start: 20101007
  2. ENBREL [Suspect]
     Indication: PSORIATIC ARTHROPATHY
     Dates: start: 20101007

REACTIONS (7)
  - INJECTION SITE PAIN [None]
  - DRUG INEFFECTIVE [None]
  - ONYCHOMADESIS [None]
  - SKIN HAEMORRHAGE [None]
  - ANIMAL SCRATCH [None]
  - DIARRHOEA [None]
  - ONYCHOCLASIS [None]
